FAERS Safety Report 20233591 (Version 1)
Quarter: 2021Q4

REPORT INFORMATION
  Report Type: Report from Study
  Country: CN (occurrence: CN)
  Receive Date: 20211227
  Receipt Date: 20211227
  Transmission Date: 20220304
  Serious: Yes (Other)
  Sender: FDA-Public Use
  Company Number: CN-BRISTOL-MYERS SQUIBB COMPANY-BMS-2020-091595

PATIENT
  Age: 76 Year
  Sex: Female

DRUGS (2)
  1. NIVOLUMAB [Suspect]
     Active Substance: NIVOLUMAB
     Indication: Non-small cell lung cancer
     Dosage: 140 MILLIGRAM, Q2WK
     Route: 042
     Dates: start: 20200803
  2. NIVOLUMAB [Suspect]
     Active Substance: NIVOLUMAB
     Dosage: 140 MILLIGRAM, Q2WK
     Route: 042
     Dates: start: 20201224

REACTIONS (4)
  - Complication associated with device [Unknown]
  - Back injury [Unknown]
  - Gait disturbance [Unknown]
  - General physical health deterioration [Unknown]
